FAERS Safety Report 20516808 (Version 1)
Quarter: 2022Q1

REPORT INFORMATION
  Report Type: Spontaneous
  Country: US (occurrence: US)
  Receive Date: 20220225
  Receipt Date: 20220225
  Transmission Date: 20220423
  Serious: No
  Sender: FDA-Public Use
  Company Number: US-GSKCCFUS-Case-01303674_AE-75953

PATIENT
  Sex: Female

DRUGS (4)
  1. TRELEGY ELLIPTA [Interacting]
     Active Substance: FLUTICASONE FUROATE\UMECLIDINIUM BROMIDE\VILANTEROL TRIFENATATE
     Indication: Product used for unknown indication
     Dosage: UNK, 100/62.5/25
     Route: 055
  2. CARVEDILOL [Interacting]
     Active Substance: CARVEDILOL
     Indication: Hypertension
     Dosage: UNK
  3. AROMASIN [Concomitant]
     Active Substance: EXEMESTANE
     Indication: Breast cancer
     Dosage: 25 MG
  4. EVEROLIMUS [Concomitant]
     Active Substance: EVEROLIMUS
     Indication: Breast cancer
     Dosage: 5 MG

REACTIONS (1)
  - Labelled drug-drug interaction medication error [Unknown]
